FAERS Safety Report 25445986 (Version 1)
Quarter: 2025Q2

REPORT INFORMATION
  Report Type: Spontaneous
  Country: JP (occurrence: JP)
  Receive Date: 20250617
  Receipt Date: 20250617
  Transmission Date: 20250717
  Serious: Yes (Other)
  Sender: ASTELLAS
  Company Number: JP-ASTELLAS-2024-AER-022107

PATIENT
  Age: 8 Decade
  Sex: Female

DRUGS (4)
  1. VYLOY [Suspect]
     Active Substance: ZOLBETUXIMAB-CLZB
     Indication: Gastric cancer
     Route: 065
     Dates: start: 20241127
  2. CAPECITABINE [Suspect]
     Active Substance: CAPECITABINE
     Indication: Gastric cancer
     Route: 048
     Dates: start: 20241128
  3. CAPECITABINE [Suspect]
     Active Substance: CAPECITABINE
     Route: 048
  4. CAPECITABINE [Suspect]
     Active Substance: CAPECITABINE
     Route: 048

REACTIONS (4)
  - Cardiac failure [Recovered/Resolved]
  - Nausea [Recovered/Resolved]
  - Nausea [Recovered/Resolved]
  - Weight decreased [Not Recovered/Not Resolved]

NARRATIVE: CASE EVENT DATE: 20241128
